FAERS Safety Report 4898580-5 (Version None)
Quarter: 2006Q1

REPORT INFORMATION
  Report Type: 
  Country: None (occurrence: None)
  Receive Date: 20060130
  Receipt Date: 20060120
  Transmission Date: 20060701
  Serious: Yes (Hospitalization)
  Sender: FDA-Public Use
  Company Number: 2005-10-0448

PATIENT
  Age: 47 Year
  Sex: Male
  Weight: 75 kg

DRUGS (5)
  1. PEG-INTRON [Suspect]
     Indication: HEPATITIS C
     Dosage: 100 MCG QW* SUBCUTANEOUS
     Route: 058
     Dates: start: 20050913, end: 20050918
  2. PEG-INTRON [Suspect]
     Indication: HEPATITIS C
     Dosage: 100 MCG QW* SUBCUTANEOUS
     Route: 058
     Dates: start: 20051230
  3. REBETOL [Suspect]
     Indication: HEPATITIS C
     Dosage: 800-UNK* MG ORAL
     Route: 048
     Dates: start: 20050913, end: 20050918
  4. REBETOL [Suspect]
     Indication: HEPATITIS C
     Dosage: 800-UNK* MG ORAL
     Route: 048
     Dates: start: 20051230
  5. GASTER RAPIDLY-DISINTEGRATING TABLETS [Concomitant]

REACTIONS (4)
  - ABDOMINAL PAIN [None]
  - FAECES DISCOLOURED [None]
  - HAEMOBILIA [None]
  - POST PROCEDURAL COMPLICATION [None]
